FAERS Safety Report 17252887 (Version 1)
Quarter: 2020Q1

REPORT INFORMATION
  Report Type: Report from Study
  Country: GB (occurrence: GB)
  Receive Date: 20200109
  Receipt Date: 20200109
  Transmission Date: 20200409
  Serious: Yes (Other)
  Sender: FDA-Public Use
  Company Number: GB-ROCHE-2513005

PATIENT

DRUGS (7)
  1. CYCLOPHOSPHAMIDE. [Suspect]
     Active Substance: CYCLOPHOSPHAMIDE
     Indication: DIFFUSE LARGE B-CELL LYMPHOMA
     Route: 042
  2. DOXORUBICIN [Suspect]
     Active Substance: DOXORUBICIN
     Indication: DIFFUSE LARGE B-CELL LYMPHOMA
     Route: 042
  3. PREDNISOLONE. [Suspect]
     Active Substance: PREDNISOLONE
     Indication: DIFFUSE LARGE B-CELL LYMPHOMA
     Route: 048
  4. VINCRISTINE [Suspect]
     Active Substance: VINCRISTINE
     Indication: DIFFUSE LARGE B-CELL LYMPHOMA
     Dosage: MAXIMUM TOTAL DOSE 2 M
     Route: 042
  5. RITUXIMAB. [Suspect]
     Active Substance: RITUXIMAB
     Indication: DIFFUSE LARGE B-CELL LYMPHOMA
     Route: 041
  6. BORTEZOMIB. [Suspect]
     Active Substance: BORTEZOMIB
     Indication: DIFFUSE LARGE B-CELL LYMPHOMA
     Dosage: ON DAYS 1 AND 8
     Route: 042
  7. BORTEZOMIB. [Suspect]
     Active Substance: BORTEZOMIB
     Dosage: ON DAYS 1-8
     Route: 058
     Dates: start: 20140228

REACTIONS (39)
  - Anxiety [Unknown]
  - Troponin increased [Unknown]
  - Constipation [Unknown]
  - Dental caries [Unknown]
  - Non-cardiac chest pain [Unknown]
  - Alanine aminotransferase increased [Unknown]
  - Proctalgia [Unknown]
  - Bone pain [Unknown]
  - Cholecystitis [Unknown]
  - Blood creatinine increased [Unknown]
  - Intestinal obstruction [Unknown]
  - Blood bilirubin increased [Unknown]
  - Lower respiratory tract infection [Unknown]
  - Arthralgia [Unknown]
  - Ascites [Unknown]
  - Atrial fibrillation [Unknown]
  - Cystitis [Unknown]
  - Neuroendocrine tumour [Unknown]
  - Angina pectoris [Unknown]
  - Bladder cancer [Unknown]
  - Clostridium difficile infection [Unknown]
  - Large intestine perforation [Unknown]
  - Agitation [Unknown]
  - Hypersensitivity [Unknown]
  - Aspartate aminotransferase increased [Unknown]
  - Chills [Unknown]
  - Liver function test abnormal [Unknown]
  - Blood alkaline phosphatase increased [Unknown]
  - Gouty arthritis [Unknown]
  - Vision blurred [Unknown]
  - Bronchial obstruction [Unknown]
  - Device related infection [Unknown]
  - Cellulitis [Unknown]
  - Fall [Unknown]
  - Confusional state [Unknown]
  - Ulcerative keratitis [Unknown]
  - Depression [Unknown]
  - Decreased appetite [Unknown]
  - Dehydration [Unknown]
